FAERS Safety Report 7399334-0 (Version None)
Quarter: 2011Q2

REPORT INFORMATION
  Report Type: 
  Country: None (occurrence: None)
  Receive Date: 20110407
  Receipt Date: 20110404
  Transmission Date: 20111010
  Serious: Yes (Death, Hospitalization, Other)
  Sender: FDA-Public Use
  Company Number: CA-ABBOTT-11P-028-0716253-00

PATIENT
  Sex: Male
  Weight: 126.21 kg

DRUGS (1)
  1. LUPRON DEPOT [Suspect]
     Indication: PROSTATE CANCER
     Dates: start: 20080705, end: 20110118

REACTIONS (7)
  - ASTHENIA [None]
  - FALL [None]
  - DEATH [None]
  - NEOPLASM MALIGNANT [None]
  - LIVER DISORDER [None]
  - DECREASED APPETITE [None]
  - DIARRHOEA [None]
